FAERS Safety Report 7779055 (Version 3)
Quarter: 2019Q2

REPORT INFORMATION
  Report Type: Report from Study
  Country: US (occurrence: US)
  Receive Date: 20110128
  Receipt Date: 20190522
  Transmission Date: 20190711
  Serious: Yes (Other)
  Sender: FDA-Public Use
  Company Number: US-PFIZER INC-2011017183

PATIENT
  Age: 56 Year
  Sex: Female

DRUGS (2)
  1. DILANTIN [Suspect]
     Active Substance: PHENYTOIN
     Indication: SEIZURE
     Dosage: UNK
  2. DILANTIN [Suspect]
     Active Substance: PHENYTOIN
     Dosage: 500 MG, DAILY [TAKE 2 CAPS BY MOUTH EVERY MORNING + 3 EVERY EVENING]
     Route: 048
     Dates: start: 20190227

REACTIONS (1)
  - Loss of consciousness [Unknown]
